FAERS Safety Report 7510673-2 (Version None)
Quarter: 2011Q2

REPORT INFORMATION
  Report Type: 
  Country: None (occurrence: None)
  Receive Date: 20110530
  Receipt Date: 20110527
  Transmission Date: 20111010
  Serious: Yes (Death, Other)
  Sender: FDA-Public Use
  Company Number: PHHY2011DK45791

PATIENT
  Sex: Male

DRUGS (2)
  1. NITRAZEPAM [Suspect]
     Dosage: 750 TABLETS
  2. RITALIN [Suspect]
     Dosage: 490 TABLETS IN 4 MONTHS

REACTIONS (2)
  - DEATH [None]
  - INTENTIONAL DRUG MISUSE [None]
